FAERS Safety Report 26108855 (Version 2)
Quarter: 2025Q4

REPORT INFORMATION
  Report Type: Spontaneous
  Country: EU (occurrence: EU)
  Receive Date: 20251201
  Receipt Date: 20251217
  Transmission Date: 20260117
  Serious: No
  Sender: TAKEDA
  Company Number: EU-TAKEDA-2025TUS107104

PATIENT
  Sex: Female

DRUGS (1)
  1. HYQVIA [Suspect]
     Active Substance: HUMAN IMMUNOGLOBULIN G\HYALURONIDASE (HUMAN RECOMBINANT)
     Indication: Product used for unknown indication
     Dosage: 10 GRAM

REACTIONS (5)
  - No adverse event [Unknown]
  - Product use issue [Unknown]
  - Device occlusion [Unknown]
  - Device alarm issue [Unknown]
  - Device infusion issue [Unknown]
